FAERS Safety Report 12117743 (Version 3)
Quarter: 2016Q2

REPORT INFORMATION
  Report Type: Report from Study
  Country: US (occurrence: US)
  Receive Date: 20160226
  Receipt Date: 20160419
  Transmission Date: 20160815
  Serious: Yes (Hospitalization, Other)
  Sender: FDA-Public Use
  Company Number: GXBR2016US000747

PATIENT
  Age: 72 Year
  Sex: Male
  Weight: 86.17 kg

DRUGS (7)
  1. CEFTRIAXONE. [Suspect]
     Active Substance: CEFTRIAXONE
     Indication: ENTEROCOCCAL INFECTION
  2. AMPICILLIN FOR INJECTION, USP [Suspect]
     Active Substance: AMPICILLIN
     Indication: OSTEOMYELITIS
     Dosage: UNK DF, UNK
     Route: 065
  3. CEFTRIAXONE. [Suspect]
     Active Substance: CEFTRIAXONE
     Indication: INTERVERTEBRAL DISCITIS
     Dosage: UNK DF, UNK
     Route: 065
  4. AMPICILLIN FOR INJECTION, USP [Suspect]
     Active Substance: AMPICILLIN
     Indication: ENTEROCOCCAL INFECTION
  5. CEFTRIAXONE. [Suspect]
     Active Substance: CEFTRIAXONE
     Indication: OSTEOMYELITIS
     Dosage: UNK DF, UNK
     Route: 065
  6. AMPICILLIN FOR INJECTION, USP [Suspect]
     Active Substance: AMPICILLIN
     Indication: INTERVERTEBRAL DISCITIS
     Dosage: UNK DF, UNK
     Route: 065
  7. NEXIUM [Concomitant]
     Active Substance: ESOMEPRAZOLE MAGNESIUM
     Indication: PROPHYLAXIS AGAINST GASTROINTESTINAL ULCER
     Dosage: 20 MG, QD
     Route: 048
     Dates: start: 20140416, end: 20151102

REACTIONS (7)
  - Pneumonia [Recovered/Resolved]
  - Dysphagia [Unknown]
  - Muscular weakness [Not Recovered/Not Resolved]
  - Tachycardia [Unknown]
  - Tachypnoea [Unknown]
  - Oxygen saturation decreased [Unknown]
  - Drug effect incomplete [Unknown]

NARRATIVE: CASE EVENT DATE: 20151118
